FAERS Safety Report 9356622 (Version 2)
Quarter: 2013Q3

REPORT INFORMATION
  Report Type: Spontaneous
  Country: US (occurrence: US)
  Receive Date: 20130619
  Receipt Date: 20130912
  Transmission Date: 20140515
  Serious: No
  Sender: FDA-Public Use
  Company Number: US-009507513-1306USA006426

PATIENT
  Age: 17 Year
  Sex: Female
  Weight: 77.98 kg

DRUGS (2)
  1. NEXPLANON [Suspect]
     Dosage: 1 ROD, UNK
     Dates: start: 20130503, end: 20130503
  2. NEXPLANON [Suspect]
     Dosage: 1 ROD, UNK
     Route: 059
     Dates: start: 20130503

REACTIONS (2)
  - Device difficult to use [Unknown]
  - Product quality issue [Unknown]
